FAERS Safety Report 20919745 (Version 1)
Quarter: 2022Q2

REPORT INFORMATION
  Report Type: Spontaneous
  Country: DE (occurrence: DE)
  Receive Date: 20220606
  Receipt Date: 20220606
  Transmission Date: 20220721
  Serious: Yes (Other)
  Sender: FDA-Public Use
  Company Number: DE-PFIZER INC-202200752728

PATIENT
  Age: 46 Year
  Sex: Female

DRUGS (1)
  1. METHOTREXATE SODIUM [Suspect]
     Active Substance: METHOTREXATE SODIUM
     Indication: Psoriatic arthropathy
     Dosage: 15 MG, WEEKLY

REACTIONS (6)
  - Haemorrhage [Recovered/Resolved]
  - Muscle spasms [Unknown]
  - Limb discomfort [Unknown]
  - Hypoaesthesia [Unknown]
  - Pain in extremity [Unknown]
  - Vein discolouration [Unknown]
